FAERS Safety Report 8842089 (Version 1)
Quarter: 2012Q4

REPORT INFORMATION
  Report Type: Spontaneous
  Country: US (occurrence: None)
  Receive Date: 20121015
  Receipt Date: 20121015
  Transmission Date: 20130627
  Serious: No
  Sender: FDA-Public Use
  Company Number: None

PATIENT
  Age: 58 Year
  Sex: Female
  Weight: 74.84 kg

DRUGS (2)
  1. BUPROPION [Suspect]
     Indication: DEPRESSION
     Dosage: 300 x1, 1 per day, po
     Route: 048
     Dates: start: 20090101, end: 20121012
  2. WELLBUTRIN XL [Concomitant]

REACTIONS (3)
  - Product substitution issue [None]
  - Drug ineffective [None]
  - Depression [None]
